FAERS Safety Report 4445715-4 (Version None)
Quarter: 2004Q3

REPORT INFORMATION
  Report Type: 
  Country: None (occurrence: None)
  Receive Date: 20040903
  Receipt Date: 20040824
  Transmission Date: 20050211
  Serious: Yes (Life-Threatening)
  Sender: FDA-Public Use
  Company Number: 2004-BP-07129AU

PATIENT
  Age: 35 Year
  Sex: Male

DRUGS (2)
  1. MOBIC [Suspect]
     Dosage: 30 MG PO
     Route: 048
     Dates: start: 20030426, end: 20030426
  2. INSULIN [Concomitant]

REACTIONS (3)
  - CIRCULATORY COLLAPSE [None]
  - DIABETIC COMA [None]
  - DRUG INTERACTION [None]
